FAERS Safety Report 6893306-8 (Version None)
Quarter: 2010Q3

REPORT INFORMATION
  Report Type: 
  Country: None (occurrence: None)
  Receive Date: 20100731
  Receipt Date: 20090811
  Transmission Date: 20110219
  Serious: No
  Sender: FDA-Public Use
  Company Number: US-PFIZER INC-2009253691

PATIENT
  Sex: Female

DRUGS (5)
  1. NEURONTIN [Suspect]
     Dosage: 50 MG, 2X/DAY
     Dates: end: 20090811
  2. LISINOPRIL [Concomitant]
     Dosage: UNK
  3. ALPRAZOLAM [Concomitant]
     Dosage: UNK
  4. ACETAMINOPHEN AND HYDROCODONE BITARTRATE [Concomitant]
     Dosage: UNK
  5. ATENOLOL [Concomitant]
     Dosage: UNK

REACTIONS (8)
  - DIZZINESS [None]
  - DRY MOUTH [None]
  - FEELING ABNORMAL [None]
  - ORAL DISORDER [None]
  - PRURITUS [None]
  - SOMNOLENCE [None]
  - SWELLING [None]
  - VISION BLURRED [None]
